FAERS Safety Report 18538044 (Version 4)
Quarter: 2021Q4

REPORT INFORMATION
  Report Type: Report from Study
  Country: US (occurrence: US)
  Receive Date: 20201123
  Receipt Date: 20211221
  Transmission Date: 20220303
  Serious: Yes (Death, Hospitalization, Other)
  Sender: FDA-Public Use
  Company Number: US-GILEAD-2019-0432608

PATIENT
  Age: 81 Year
  Sex: Male
  Weight: 94 kg

DRUGS (57)
  1. AXICABTAGENE CILOLEUCEL [Suspect]
     Active Substance: AXICABTAGENE CILOLEUCEL
     Indication: Diffuse large B-cell lymphoma
     Dosage: 68 ML
     Route: 042
     Dates: start: 20190924, end: 20190924
  2. AXICABTAGENE CILOLEUCEL [Suspect]
     Active Substance: AXICABTAGENE CILOLEUCEL
     Indication: Follicular lymphoma
  3. FLUDARABINE [Suspect]
     Active Substance: FLUDARABINE PHOSPHATE
     Indication: Bone marrow conditioning regimen
     Dosage: 30 MG/M2, QD
     Route: 042
     Dates: start: 20190919, end: 20210921
  4. CYCLOPHOSPHAMIDE [Suspect]
     Active Substance: CYCLOPHOSPHAMIDE
     Indication: Bone marrow conditioning regimen
     Dosage: 500 MG/M2, QD
     Route: 042
     Dates: start: 20190919, end: 20210921
  5. TAMSULOSIN [Concomitant]
     Active Substance: TAMSULOSIN
     Dosage: UNK
     Dates: start: 20190301
  6. FINASTERIDE [Concomitant]
     Active Substance: FINASTERIDE
     Dosage: UNK
     Dates: start: 20180605
  7. LATANOPROST [Concomitant]
     Active Substance: LATANOPROST
     Dosage: 1 DROP DAILY
     Route: 050
     Dates: start: 20061114, end: 20191101
  8. ACYCLOVIR [Concomitant]
     Active Substance: ACYCLOVIR
     Dosage: UNK
     Dates: start: 20190924
  9. LISINOPRIL [Concomitant]
     Active Substance: LISINOPRIL
     Dosage: UNK
     Dates: start: 20191006
  10. SULFAMETHOXAZOLE AND TRIMETHOPRIM [Concomitant]
     Active Substance: SULFAMETHOXAZOLE\TRIMETHOPRIM
     Dosage: UNK
     Dates: start: 20191007
  11. HUMAN IMMUNOGLOBULIN G [Concomitant]
     Active Substance: HUMAN IMMUNOGLOBULIN G
     Dosage: UNK
     Route: 042
     Dates: start: 202002
  12. FLUCONAZOLE [Concomitant]
     Active Substance: FLUCONAZOLE
     Dosage: UNK
     Dates: start: 20191007
  13. APPLE CIDER VINEGAR [Concomitant]
     Active Substance: APPLE CIDER VINEGAR
     Dosage: 500 MG, QD
     Route: 048
     Dates: start: 201809, end: 20190924
  14. ACETAMINOPHEN [Concomitant]
     Active Substance: ACETAMINOPHEN
     Dosage: 81 MG, QD
     Route: 048
     Dates: start: 2009, end: 20190924
  15. CALCIUM [Concomitant]
     Active Substance: CALCIUM
     Dosage: 1500 MG, QD
     Route: 048
     Dates: start: 20120531, end: 20190924
  16. HYDROCORTISONE [Concomitant]
     Active Substance: HYDROCORTISONE
     Dosage: 1 APPLICATION PRN
     Route: 061
     Dates: start: 199812, end: 20200927
  17. VITAMINS [Concomitant]
     Active Substance: VITAMINS
  18. DIETARY SUPPLEMENT [Concomitant]
     Active Substance: DIETARY SUPPLEMENT
  19. FLONASE [Concomitant]
     Active Substance: FLUTICASONE PROPIONATE
  20. COLACE [Concomitant]
     Active Substance: DOCUSATE SODIUM
  21. MIRALAX [Concomitant]
     Active Substance: POLYETHYLENE GLYCOL 3350
  22. ONDANSETRON [Concomitant]
     Active Substance: ONDANSETRON
  23. SODIUM CHLORIDE [Concomitant]
     Active Substance: SODIUM CHLORIDE
  24. PROCHLORPERAZINE [Concomitant]
     Active Substance: PROCHLORPERAZINE
  25. ALLOPURINOL [Concomitant]
     Active Substance: ALLOPURINOL
  26. BENADRYL [Concomitant]
     Active Substance: DIPHENHYDRAMINE HYDROCHLORIDE
  27. ENOXAPARIN [Concomitant]
     Active Substance: ENOXAPARIN
  28. LEVOFLOXACIN [Concomitant]
     Active Substance: LEVOFLOXACIN
  29. FAMOTIDINE [Concomitant]
     Active Substance: FAMOTIDINE
  30. MAGNESIUM CITRATE [Concomitant]
     Active Substance: MAGNESIUM CITRATE
  31. VANCOMYCIN [Concomitant]
     Active Substance: VANCOMYCIN
  32. LIDOCAINE [Concomitant]
     Active Substance: LIDOCAINE
  33. OXYGEN [Concomitant]
     Active Substance: OXYGEN
  34. PLATELETS [Concomitant]
     Active Substance: HUMAN PLATELET, ALLOGENIC
  35. METHYLPREDNISOLONE [Concomitant]
     Active Substance: METHYLPREDNISOLONE
  36. CHLORPROMAZINE [Concomitant]
     Active Substance: CHLORPROMAZINE
  37. INSULIN GLARGINE [Concomitant]
     Active Substance: INSULIN GLARGINE
  38. SENNOSIDES A AND B [Concomitant]
     Active Substance: SENNOSIDES A AND B
  39. INSULIN LISPRO [Concomitant]
     Active Substance: INSULIN LISPRO
  40. INFLUENZA VIRUS VACCINE [Concomitant]
     Active Substance: INFLUENZA VIRUS VACCINE
  41. FILGRASTIM [Concomitant]
     Active Substance: FILGRASTIM
  42. PRIVIGEN [Concomitant]
     Active Substance: HUMAN IMMUNOGLOBULIN G
  43. MAGIC MIX [Concomitant]
  44. TIMOLOL [Concomitant]
     Active Substance: TIMOLOL
  45. COMBIGAN [Concomitant]
     Active Substance: BRIMONIDINE TARTRATE\TIMOLOL MALEATE
  46. PENTAMIDINE [Concomitant]
     Active Substance: PENTAMIDINE
  47. AZITHROMYCIN [Concomitant]
     Active Substance: AZITHROMYCIN
  48. DEXAMETHASONE [Concomitant]
     Active Substance: DEXAMETHASONE
     Dosage: UNK
     Dates: start: 20190924, end: 20210926
  49. DEXAMETHASONE [Concomitant]
     Active Substance: DEXAMETHASONE
     Dosage: 10 MG, ONCE
     Dates: start: 20191009, end: 20191009
  50. DEXAMETHASONE [Concomitant]
     Active Substance: DEXAMETHASONE
     Dosage: 4 MG, BID
     Dates: start: 20191010, end: 20191011
  51. DEXAMETHASONE [Concomitant]
     Active Substance: DEXAMETHASONE
     Dosage: 10 MG BID AND 4 MG ONCE
     Dates: start: 20191012, end: 20191012
  52. DEXAMETHASONE [Concomitant]
     Active Substance: DEXAMETHASONE
     Dosage: 10 MG, TID
     Dates: start: 20191013, end: 20191013
  53. DEXAMETHASONE [Concomitant]
     Active Substance: DEXAMETHASONE
     Dosage: 10 MG, QID
     Dates: start: 20191014, end: 20191014
  54. DEXAMETHASONE [Concomitant]
     Active Substance: DEXAMETHASONE
     Dosage: 10 MG, TID
     Dates: start: 20191015, end: 20191015
  55. DEXAMETHASONE [Concomitant]
     Active Substance: DEXAMETHASONE
     Dosage: 10 MG
     Dates: start: 20191016, end: 20191016
  56. DEXAMETHASONE [Concomitant]
     Active Substance: DEXAMETHASONE
     Dosage: 10 MG, BID
     Dates: start: 20191017, end: 20191017
  57. DEXAMETHASONE [Concomitant]
     Active Substance: DEXAMETHASONE
     Dosage: UNK
     Dates: start: 202009

REACTIONS (2)
  - Toxic encephalopathy [Fatal]
  - Muscular weakness [Recovered/Resolved]

NARRATIVE: CASE EVENT DATE: 20191008
